FAERS Safety Report 19032109 (Version 1)
Quarter: 2021Q1

REPORT INFORMATION
  Report Type: Spontaneous
  Country: US (occurrence: US)
  Receive Date: 20210319
  Receipt Date: 20210319
  Transmission Date: 20210420
  Serious: Yes (Hospitalization, Other)
  Sender: FDA-Public Use
  Company Number: US-BRISTOL-MYERS SQUIBB COMPANY-BMS-2021-024814

PATIENT
  Sex: Female
  Weight: 140 kg

DRUGS (3)
  1. OPDIVO [Suspect]
     Active Substance: NIVOLUMAB
     Indication: LUNG NEOPLASM MALIGNANT
     Dosage: EVERY 3 WEEKS
     Route: 042
     Dates: start: 2017
  2. OPDIVO [Suspect]
     Active Substance: NIVOLUMAB
     Dosage: MONTHLY
     Route: 042
     Dates: start: 2018
  3. OMEPRAZOLE. [Concomitant]
     Active Substance: OMEPRAZOLE
     Indication: GASTROOESOPHAGEAL REFLUX DISEASE
     Dosage: UNK
     Route: 065

REACTIONS (17)
  - Skin discolouration [Unknown]
  - Miliaria [Unknown]
  - Headache [Unknown]
  - Pain in jaw [Unknown]
  - Inflammation [Unknown]
  - Colitis ulcerative [Unknown]
  - Heart rate increased [Unknown]
  - Rash vesicular [Unknown]
  - Arthralgia [Unknown]
  - Off label use [Unknown]
  - Alopecia [Unknown]
  - Somnolence [Unknown]
  - Dyspnoea [Unknown]
  - Blood pressure increased [Unknown]
  - Ear pain [Unknown]
  - Gait disturbance [Unknown]
  - Fatigue [Unknown]

NARRATIVE: CASE EVENT DATE: 2019
